FAERS Safety Report 4478507-0 (Version None)
Quarter: 2004Q4

REPORT INFORMATION
  Report Type: 
  Country: None (occurrence: None)
  Receive Date: 20041019
  Receipt Date: 20041008
  Transmission Date: 20050328
  Serious: Yes (Other)
  Sender: FDA-Public Use
  Company Number: US-AMGEN-US095066

PATIENT
  Age: 74 Year
  Sex: Female

DRUGS (1)
  1. EPOGEN [Suspect]
     Indication: MYELODYSPLASTIC SYNDROME
     Route: 058
     Dates: start: 20030401

REACTIONS (3)
  - APLASIA PURE RED CELL [None]
  - BIOPSY BONE MARROW ABNORMAL [None]
  - ERYTHROID SERIES ABNORMAL [None]
